FAERS Safety Report 24323800 (Version 1)
Quarter: 2024Q3

REPORT INFORMATION
  Report Type: Spontaneous
  Country: CZ (occurrence: CZ)
  Receive Date: 20240916
  Receipt Date: 20240916
  Transmission Date: 20241017
  Serious: Yes (Life-Threatening, Other)
  Sender: BRISTOL MYERS SQUIBB
  Company Number: CZ-TEVA-VS-3204571

PATIENT
  Age: 75 Year
  Sex: Male

DRUGS (20)
  1. IPILIMUMAB [Suspect]
     Active Substance: IPILIMUMAB
     Indication: Metastatic squamous cell carcinoma
  2. IPILIMUMAB [Suspect]
     Active Substance: IPILIMUMAB
     Indication: Metastases to the mediastinum
  3. IPILIMUMAB [Suspect]
     Active Substance: IPILIMUMAB
     Indication: Lung squamous cell carcinoma metastatic
  4. IPILIMUMAB [Suspect]
     Active Substance: IPILIMUMAB
     Indication: Metastases to heart
  5. IPILIMUMAB [Suspect]
     Active Substance: IPILIMUMAB
     Indication: Metastases to spine
  6. NIVOLUMAB [Suspect]
     Active Substance: NIVOLUMAB
     Indication: Metastatic squamous cell carcinoma
     Dates: start: 202112, end: 202311
  7. NIVOLUMAB [Suspect]
     Active Substance: NIVOLUMAB
     Indication: Metastases to the mediastinum
  8. NIVOLUMAB [Suspect]
     Active Substance: NIVOLUMAB
     Indication: Metastases to heart
  9. NIVOLUMAB [Suspect]
     Active Substance: NIVOLUMAB
     Indication: Lung squamous cell carcinoma metastatic
  10. NIVOLUMAB [Suspect]
     Active Substance: NIVOLUMAB
     Indication: Metastases to spine
  11. PACLITAXEL [Suspect]
     Active Substance: PACLITAXEL
     Indication: Metastatic squamous cell carcinoma
     Dates: start: 202311
  12. PACLITAXEL [Suspect]
     Active Substance: PACLITAXEL
     Indication: Lung squamous cell carcinoma metastatic
  13. PACLITAXEL [Suspect]
     Active Substance: PACLITAXEL
     Indication: Metastases to spine
  14. PACLITAXEL [Suspect]
     Active Substance: PACLITAXEL
     Indication: Metastases to heart
  15. PACLITAXEL [Suspect]
     Active Substance: PACLITAXEL
     Indication: Metastases to the mediastinum
  16. CARBOPLATIN [Suspect]
     Active Substance: CARBOPLATIN
     Indication: Metastatic squamous cell carcinoma
     Dates: start: 202112, end: 202311
  17. CARBOPLATIN [Suspect]
     Active Substance: CARBOPLATIN
     Indication: Metastases to the mediastinum
  18. CARBOPLATIN [Suspect]
     Active Substance: CARBOPLATIN
     Indication: Metastases to spine
  19. CARBOPLATIN [Suspect]
     Active Substance: CARBOPLATIN
     Indication: Metastases to spine
  20. CARBOPLATIN [Suspect]
     Active Substance: CARBOPLATIN
     Indication: Metastases to heart

REACTIONS (1)
  - Neutropenia [Unknown]
